FAERS Safety Report 17371779 (Version 4)
Quarter: 2024Q4

REPORT INFORMATION
  Report Type: Report from Study
  Country: US (occurrence: US)
  Receive Date: 20200205
  Receipt Date: 20241115
  Transmission Date: 20250115
  Serious: Yes (Other)
  Sender: TAKEDA
  Company Number: US-SHIRE-US202004288

PATIENT
  Age: 35 Year
  Sex: Male

DRUGS (4)
  1. IDURSULFASE [Suspect]
     Active Substance: IDURSULFASE
     Indication: Mucopolysaccharidosis II
     Dosage: 4 DOSAGE FORM, 1/WEEK
     Dates: start: 20070213
  2. IDURSULFASE [Suspect]
     Active Substance: IDURSULFASE
     Dosage: 24 MILLIGRAM
  3. IDURSULFASE [Suspect]
     Active Substance: IDURSULFASE
     Dosage: 24 MILLIGRAM, 1/WEEK
  4. CLARITIN [Concomitant]
     Active Substance: LORATADINE
     Indication: Premedication
     Dosage: UNK UNK, 1/WEEK

REACTIONS (9)
  - Catheter site thrombosis [Unknown]
  - Conjunctivitis [Recovering/Resolving]
  - Bronchitis [Recovered/Resolved]
  - Salivary hypersecretion [Unknown]
  - Middle ear effusion [Unknown]
  - Musculoskeletal discomfort [Unknown]
  - Productive cough [Unknown]
  - Back pain [Unknown]
  - Ear infection [Recovering/Resolving]

NARRATIVE: CASE EVENT DATE: 20200130
